FAERS Safety Report 14372171 (Version 1)
Quarter: 2018Q1

REPORT INFORMATION
  Report Type: Report from Study
  Country: ES (occurrence: ES)
  Receive Date: 20180110
  Receipt Date: 20180110
  Transmission Date: 20180509
  Serious: Yes (Hospitalization)
  Sender: FDA-Public Use
  Company Number: ES-TEVA-2017-ES-841703

PATIENT
  Age: 86 Year
  Sex: Female

DRUGS (2)
  1. DILIBAN 75 MG/650 MG COMPRIMIDOS [Interacting]
     Active Substance: ACETAMINOPHEN\TRAMADOL HYDROCHLORIDE
     Indication: NEURALGIA
     Dosage: 1-1-1
     Route: 048
     Dates: start: 2017
  2. GABAPENTINA 100 MG C?PSULA [Suspect]
     Active Substance: GABAPENTIN
     Indication: NEURALGIA
     Dosage: 0-0-1
     Route: 048
     Dates: start: 2017

REACTIONS (2)
  - Drug interaction [Unknown]
  - Urinary retention [Recovering/Resolving]

NARRATIVE: CASE EVENT DATE: 201706
